FAERS Safety Report 5860841-0 (Version None)
Quarter: 2008Q3

REPORT INFORMATION
  Report Type: 
  Country: None (occurrence: None)
  Receive Date: 20080827
  Receipt Date: 20071130
  Transmission Date: 20090109
  Serious: No
  Sender: FDA-Public Use
  Company Number: US-ABBOTT-07P-163-0426875-00

PATIENT
  Sex: Male
  Weight: 104.5 kg

DRUGS (2)
  1. NIASPAN [Suspect]
     Indication: BLOOD CHOLESTEROL INCREASED
     Route: 048
     Dates: start: 20071112
  2. MESALAMINE [Concomitant]
     Indication: COLITIS ULCERATIVE
     Route: 048

REACTIONS (3)
  - BLOOD URINE [None]
  - DYSURIA [None]
  - POLLAKIURIA [None]
